FAERS Safety Report 8189937-8 (Version None)
Quarter: 2012Q1

REPORT INFORMATION
  Report Type: 
  Country: None (occurrence: None)
  Receive Date: 20120305
  Receipt Date: 20120217
  Transmission Date: 20120608
  Serious: Yes (Hospitalization)
  Sender: FDA-Public Use
  Company Number: SAN_00040_2012

PATIENT
  Age: 39 Year
  Sex: Male

DRUGS (1)
  1. METFORMIN HCL [Suspect]
     Indication: TYPE 2 DIABETES MELLITUS
     Dosage: (59.5 G 1X NOT THE RECOMMENDED DOSAGE (70 TABLETS) ORAL), (DF ORAL)
     Route: 048

REACTIONS (10)
  - BLOOD GLUCOSE INCREASED [None]
  - SUICIDE ATTEMPT [None]
  - LACTIC ACIDOSIS [None]
  - RENAL FAILURE ACUTE [None]
  - VOMITING [None]
  - NAUSEA [None]
  - INTENTIONAL OVERDOSE [None]
  - ASTHENIA [None]
  - DIARRHOEA [None]
  - TOXICITY TO VARIOUS AGENTS [None]
